FAERS Safety Report 8615019-4 (Version None)
Quarter: 2012Q3

REPORT INFORMATION
  Report Type: 
  Country: None (occurrence: None)
  Receive Date: 20120823
  Receipt Date: 20120815
  Transmission Date: 20120928
  Serious: No
  Sender: FDA-Public Use
  Company Number: US-BAYER-2012-085619

PATIENT
  Age: 51 Year
  Sex: Male
  Weight: 102 kg

DRUGS (22)
  1. TRASYLOL [Suspect]
     Dosage: 2X 10 KIU
     Route: 042
     Dates: start: 20060913, end: 20060913
  2. ISOFLURANE [Concomitant]
     Dosage: UNK
     Dates: start: 20060913
  3. CEFUROXIME [Concomitant]
     Dosage: 1.6 G, UNK
     Dates: start: 20060913
  4. TRASYLOL [Suspect]
     Indication: HEART TRANSPLANT
     Dosage: 1 ML, TEST DOSE
     Route: 042
     Dates: start: 20060913, end: 20060913
  5. MIDAZOLAM [Concomitant]
     Dosage: UNK
     Dates: start: 20060913
  6. PHENYLEPHRINE HYDROCHLORIDE [Concomitant]
     Dosage: UNK
     Dates: start: 20060913
  7. EPINEPHRINE [Concomitant]
     Dosage: UNK
     Dates: start: 20060913
  8. FRESH FROZEN PLASMA [Concomitant]
     Dosage: 5 U, UNK
  9. POTASSIUM [Concomitant]
  10. HEPARIN [Concomitant]
  11. INSULIN [Concomitant]
     Dosage: UNK
     Dates: start: 20060913
  12. SOLU-MEDROL [Concomitant]
     Dosage: UNK
     Dates: start: 20060913
  13. LIDOCAINE [Concomitant]
     Dosage: UNK
     Dates: start: 20060913
  14. TRASYLOL [Suspect]
     Dosage: 50 ML/HR
     Route: 042
     Dates: start: 20060913, end: 20060913
  15. FENTANYL [Concomitant]
     Dosage: UNK
     Dates: start: 20060913
  16. VITAMIN K TAB [Concomitant]
  17. ASPIRIN [Concomitant]
  18. NEXIUM [Concomitant]
  19. PANCURONIUM BROMIDE [Concomitant]
     Dosage: UNK
     Dates: start: 20060913
  20. DOBUTAMINE [Concomitant]
     Dosage: UNK
     Dates: start: 20060913
  21. VASOPRESSIN [Concomitant]
     Dosage: UNK
     Dates: start: 20060913
  22. LASIX [Concomitant]
     Dosage: UNK
     Dates: start: 20060913

REACTIONS (1)
  - PLEURAL EFFUSION [None]
